FAERS Safety Report 6701139-8 (Version None)
Quarter: 2010Q2

REPORT INFORMATION
  Report Type: 
  Country: None (occurrence: None)
  Receive Date: 20100428
  Receipt Date: 20100428
  Transmission Date: 20101027
  Serious: No
  Sender: FDA-Public Use
  Company Number: None

PATIENT
  Age: 51 Year
  Sex: Female

DRUGS (1)
  1. BYETTA [Suspect]
     Dosage: 10MCG TWICE DAILY

REACTIONS (2)
  - BLOOD GLUCOSE INCREASED [None]
  - DEVICE FAILURE [None]
